FAERS Safety Report 8909811 (Version 1)
Quarter: 2012Q4

REPORT INFORMATION
  Report Type: 
  Country: CH (occurrence: CH)
  Receive Date: 20121115
  Receipt Date: 20121115
  Transmission Date: 20130627
  Serious: Yes (Other)
  Sender: FDA-Public Use
  Company Number: CH-PFIZER INC-2012285324

PATIENT
  Age: 37 Year
  Sex: Female

DRUGS (3)
  1. VENLAFAXINE HYDROCHLORIDE [Suspect]
     Dosage: 150 mg, 1x/day
     Route: 048
  2. TEMESTA [Suspect]
     Dosage: 1 mg 2x/day, as needed
     Route: 048
  3. REMERON [Suspect]
     Dosage: 30 mg, 1x/day
     Route: 048

REACTIONS (1)
  - Mental disorder [Unknown]
